FAERS Safety Report 23279601 (Version 1)
Quarter: 2023Q4

REPORT INFORMATION
  Report Type: Spontaneous
  Country: US (occurrence: US)
  Receive Date: 20231210
  Receipt Date: 20231210
  Transmission Date: 20240110
  Serious: Yes (Other)
  Sender: FDA-Public Use
  Company Number: US-ENDO-CASE-0049243

PATIENT
  Sex: Male

DRUGS (2)
  1. PERCOCET [Suspect]
     Active Substance: ACETAMINOPHEN\OXYCODONE HYDROCHLORIDE
  2. ACETAMINOPHEN\OXYCODONE HYDROCHLORIDE [Suspect]
     Active Substance: ACETAMINOPHEN\OXYCODONE HYDROCHLORIDE

REACTIONS (13)
  - Overdose [Unknown]
  - Dependence [Unknown]
  - Gastrointestinal injury [Unknown]
  - Intracranial pressure increased [Unknown]
  - CSF pressure increased [Unknown]
  - Subdural haematoma [Unknown]
  - Anal injury [Unknown]
  - Gastrointestinal disorder [Unknown]
  - Insomnia [Unknown]
  - Craniotomy [Unknown]
  - Cardiovascular disorder [Unknown]
  - Hypertension [Unknown]
  - Hypertension [Unknown]
